FAERS Safety Report 7111461-1 (Version None)
Quarter: 2010Q4

REPORT INFORMATION
  Report Type: 
  Country: None (occurrence: None)
  Receive Date: 20101118
  Receipt Date: 20100624
  Transmission Date: 20110411
  Serious: No
  Sender: FDA-Public Use
  Company Number: US-PFIZER INC-2010062496

PATIENT

DRUGS (2)
  1. ZYVOX [Suspect]
     Dosage: 600 MG, EVERY TWELVE HOURS
     Route: 058
     Dates: start: 20100517, end: 20100517
  2. CEFTAZIDIME [Concomitant]
     Dosage: 1 G, UNK

REACTIONS (3)
  - EXTRAVASATION [None]
  - INCORRECT ROUTE OF DRUG ADMINISTRATION [None]
  - INJECTION SITE SWELLING [None]
